FAERS Safety Report 6244708-4 (Version None)
Quarter: 2009Q2

REPORT INFORMATION
  Report Type: 
  Country: None (occurrence: None)
  Receive Date: 20090623
  Receipt Date: 20090615
  Transmission Date: 20091009
  Serious: No
  Sender: FDA-Public Use
  Company Number: LTI2009A00093

PATIENT
  Age: 59 Year
  Sex: Male

DRUGS (4)
  1. LANSOPRAZOLE [Suspect]
     Indication: PROPHYLAXIS
     Dosage: 30 MG (30 MG, 1 IN 1 D), ORAL
     Route: 048
     Dates: start: 20090211, end: 20090315
  2. NEXEN (NIMESULIDE) [Concomitant]
  3. EZETIMIBE [Concomitant]
  4. PROPRANOLOL [Concomitant]

REACTIONS (1)
  - ALOPECIA [None]
